FAERS Safety Report 4360242-0 (Version None)
Quarter: 2004Q2

REPORT INFORMATION
  Report Type: 
  Country: None (occurrence: None)
  Receive Date: 20040518
  Receipt Date: 20040518
  Transmission Date: 20050107
  Serious: Yes (Life-Threatening, Hospitalization)
  Sender: FDA-Public Use
  Company Number: None

PATIENT
  Age: 32 Year
  Sex: Male

DRUGS (7)
  1. ALPRAZOLAM [Suspect]
     Indication: ANXIETY
  2. NIFEDIPINE [Suspect]
     Indication: HYPERTENSION
  3. RANITIDINE [Concomitant]
  4. LORAZEPAM [Concomitant]
  5. HD [Concomitant]
  6. FENTANYL [Concomitant]
  7. NITROGLYCERIN GTT [Concomitant]

REACTIONS (11)
  - AGITATION [None]
  - BLOOD PRESSURE INCREASED [None]
  - DRUG ABUSER [None]
  - HAEMODIALYSIS [None]
  - HYPOTHERMIA [None]
  - MENTAL STATUS CHANGES [None]
  - MULTIPLE DRUG OVERDOSE [None]
  - PAIN [None]
  - PNEUMONIA ASPIRATION [None]
  - RENAL FAILURE CHRONIC [None]
  - RESPIRATORY RATE INCREASED [None]
